FAERS Safety Report 8947291 (Version 2)
Quarter: 2015Q1

REPORT INFORMATION
  Report Type: Report from Study
  Country: FR (occurrence: FR)
  Receive Date: 20121205
  Receipt Date: 20150227
  Transmission Date: 20150721
  Serious: Yes (Hospitalization, Other)
  Sender: FDA-Public Use
  Company Number: FR-ROCHE-1162736

PATIENT
  Age: 62 Year
  Sex: Female

DRUGS (9)
  1. RITUXIMAB [Suspect]
     Active Substance: RITUXIMAB
     Route: 042
     Dates: start: 20080222
  2. RITUXIMAB [Suspect]
     Active Substance: RITUXIMAB
     Route: 042
     Dates: start: 20081008
  3. RITUXIMAB [Suspect]
     Active Substance: RITUXIMAB
     Route: 042
     Dates: start: 20081023
  4. AZATHIOPRINE. [Concomitant]
     Active Substance: AZATHIOPRINE
     Route: 065
     Dates: start: 20070720, end: 20070801
  5. RITUXIMAB [Suspect]
     Active Substance: RITUXIMAB
     Route: 042
     Dates: start: 20070817
  6. RITUXIMAB [Suspect]
     Active Substance: RITUXIMAB
     Route: 042
     Dates: end: 20100105
  7. SALAZOPYRINE [Concomitant]
     Active Substance: SULFASALAZINE
     Route: 065
  8. RITUXIMAB [Suspect]
     Active Substance: RITUXIMAB
     Route: 042
     Dates: start: 20080306
  9. RITUXIMAB [Suspect]
     Active Substance: RITUXIMAB
     Indication: RHEUMATOID ARTHRITIS
     Route: 042
     Dates: start: 20070720

REACTIONS (9)
  - Squamous cell carcinoma [Not Recovered/Not Resolved]
  - Adrenal mass [Not Recovered/Not Resolved]
  - Metastases to lung [Not Recovered/Not Resolved]
  - Hilar lymphadenopathy [Not Recovered/Not Resolved]
  - Cell death [Recovered/Resolved]
  - Subcutaneous abscess [Recovered/Resolved]
  - Back pain [Not Recovered/Not Resolved]
  - Cholestasis [Recovered/Resolved]
  - Lymphopenia [Not Recovered/Not Resolved]

NARRATIVE: CASE EVENT DATE: 200708
